FAERS Safety Report 20729431 (Version 3)
Quarter: 2022Q2

REPORT INFORMATION
  Report Type: Spontaneous
  Country: US (occurrence: US)
  Receive Date: 20220420
  Receipt Date: 20220429
  Transmission Date: 20220721
  Serious: No
  Sender: FDA-Public Use
  Company Number: US-UNITED THERAPEUTICS-UNT-2022-008261

PATIENT
  Age: 28 Year
  Sex: Female
  Weight: 79.365 kg

DRUGS (4)
  1. REMODULIN [Suspect]
     Active Substance: TREPROSTINIL
     Indication: Pulmonary arterial hypertension
     Dosage: UNK, CONTINUING
     Route: 041
     Dates: start: 20220322
  2. REMODULIN [Suspect]
     Active Substance: TREPROSTINIL
     Dosage: 0.010 ?G/KG, CONTINUING
     Route: 041
  3. REMODULIN [Suspect]
     Active Substance: TREPROSTINIL
     Dosage: 0.02 ?G/KG, CONTINUING
     Route: 041
  4. SILDENAFIL [Concomitant]
     Active Substance: SILDENAFIL
     Indication: Product used for unknown indication
     Dosage: UNK
     Route: 065

REACTIONS (8)
  - Injection site haemorrhage [Unknown]
  - Dermatitis contact [Unknown]
  - Injection site erythema [Unknown]
  - Injection site rash [Unknown]
  - Injection site discharge [Unknown]
  - Injection site pruritus [Unknown]
  - Injection site discolouration [Unknown]
  - Injection site warmth [Unknown]

NARRATIVE: CASE EVENT DATE: 20220415
